FAERS Safety Report 13555026 (Version 1)
Quarter: 2017Q2

REPORT INFORMATION
  Report Type: Spontaneous
  Country: US (occurrence: US)
  Receive Date: 20170517
  Receipt Date: 20170517
  Transmission Date: 20170830
  Serious: Yes (Hospitalization)
  Sender: FDA-Public Use
  Company Number: None

PATIENT
  Age: 67 Year
  Sex: Male

DRUGS (13)
  1. VITAMIN D [Concomitant]
     Active Substance: CHOLECALCIFEROL
  2. METOPROLOL TARTRATE. [Concomitant]
     Active Substance: METOPROLOL TARTRATE
  3. ENBREL [Suspect]
     Active Substance: ETANERCEPT
     Indication: RHEUMATOID ARTHRITIS
     Route: 058
  4. LOSARTAN. [Concomitant]
     Active Substance: LOSARTAN
  5. ATORVASTATIN [Concomitant]
     Active Substance: ATORVASTATIN
  6. NITROGLYCERIN. [Concomitant]
     Active Substance: NITROGLYCERIN
  7. METOPROLOL. [Concomitant]
     Active Substance: METOPROLOL
  8. METHOTREXATE. [Concomitant]
     Active Substance: METHOTREXATE
  9. ONDANSETRON [Concomitant]
     Active Substance: ONDANSETRON
  10. FOLIC ACID. [Concomitant]
     Active Substance: FOLIC ACID
  11. BELSOMRA [Concomitant]
     Active Substance: SUVOREXANT
  12. FINASTERIDE. [Concomitant]
     Active Substance: FINASTERIDE
  13. LEVOFLOXACIN. [Concomitant]
     Active Substance: LEVOFLOXACIN

REACTIONS (3)
  - Depression [None]
  - Decreased appetite [None]
  - Cardiac arrest [None]

NARRATIVE: CASE EVENT DATE: 20170415
